FAERS Safety Report 6119297-5 (Version None)
Quarter: 2009Q1

REPORT INFORMATION
  Report Type: 
  Country: None (occurrence: None)
  Receive Date: 20090316
  Receipt Date: 20090305
  Transmission Date: 20090719
  Serious: Yes (Other)
  Sender: FDA-Public Use
  Company Number: PHHY2009CA08354

PATIENT
  Age: 70 Year
  Sex: Female
  Weight: 46.712 kg

DRUGS (1)
  1. ACLASTA [Suspect]
     Dosage: UNK
     Dates: start: 20080427

REACTIONS (6)
  - ASTHENIA [None]
  - FACIAL PALSY [None]
  - MYALGIA [None]
  - NAUSEA [None]
  - PAIN IN EXTREMITY [None]
  - WEIGHT DECREASED [None]
